FAERS Safety Report 26010836 (Version 1)
Quarter: 2025Q4

REPORT INFORMATION
  Report Type: Spontaneous
  Country: AU (occurrence: AU)
  Receive Date: 20251107
  Receipt Date: 20251107
  Transmission Date: 20260118
  Serious: Yes (Other)
  Sender: MERCK SHARP & DOHME LLC
  Company Number: AU-009507513-2344606

PATIENT
  Sex: Male

DRUGS (2)
  1. M-M-R II [Suspect]
     Active Substance: MEASLES VIRUS STRAIN ENDERS^ ATTENUATED EDMONSTON LIVE ANTIGEN\MUMPS VIRUS STRAIN B LEVEL JERYL LYNN
     Indication: Prophylaxis
     Dates: start: 20240712, end: 20240712
  2. STERILE DILUENT (WATER) [Suspect]
     Active Substance: WATER
     Indication: Prophylaxis
     Dates: start: 20240712, end: 20240712

REACTIONS (7)
  - Autism spectrum disorder [Unknown]
  - Developmental regression [Unknown]
  - Influenza like illness [Unknown]
  - Rash [Unknown]
  - Swelling face [Unknown]
  - Nasopharyngitis [Unknown]
  - Pyrexia [Unknown]
